FAERS Safety Report 16141069 (Version 1)
Quarter: 2019Q2

REPORT INFORMATION
  Report Type: Spontaneous
  Country: US (occurrence: US)
  Receive Date: 20190330
  Receipt Date: 20190330
  Transmission Date: 20190711
  Serious: Yes (Other)
  Sender: FDA-Public Use
  Company Number: None

PATIENT
  Age: 70 Year
  Sex: Female
  Weight: 45 kg

DRUGS (2)
  1. COMBIGAN [Suspect]
     Active Substance: BRIMONIDINE TARTRATE\TIMOLOL MALEATE
  2. BRIMONIDINE TARTRATE (DISPENSING ERROR), COMBIGAN (CORRECT) [Suspect]
     Active Substance: BRIMONIDINE TARTRATE
     Indication: GLAUCOMA

REACTIONS (2)
  - Product dispensing error [None]
  - Drug monitoring procedure not performed [None]

NARRATIVE: CASE EVENT DATE: 20190218
